FAERS Safety Report 8442964-5 (Version None)
Quarter: 2012Q2

REPORT INFORMATION
  Report Type: 
  Country: None (occurrence: None)
  Receive Date: 20120615
  Receipt Date: 20120612
  Transmission Date: 20120825
  Serious: Yes (Death, Other)
  Sender: FDA-Public Use
  Company Number: FI-ELI_LILLY_AND_COMPANY-FI201206004217

PATIENT
  Sex: Female

DRUGS (6)
  1. FORTEO [Suspect]
     Indication: OSTEOPOROSIS
     Dosage: 20 UG, QD
     Route: 058
     Dates: start: 20100523
  2. CALMAG D [Concomitant]
     Indication: MEDICAL DIET
  3. FUROSEMIDE [Concomitant]
     Indication: BLOOD PRESSURE
  4. ACETAMINOPHEN [Concomitant]
     Indication: PAIN
  5. HYDANTIN [Concomitant]
     Indication: EPILEPSY
  6. PROGRAF [Concomitant]

REACTIONS (3)
  - AORTIC STENOSIS [None]
  - CARDIAC FAILURE [None]
  - FALL [None]
